FAERS Safety Report 17147438 (Version 2)
Quarter: 2019Q4

REPORT INFORMATION
  Report Type: Spontaneous
  Country: JP (occurrence: JP)
  Receive Date: 20191212
  Receipt Date: 20191231
  Transmission Date: 20200122
  Serious: Yes (Death, Hospitalization, Other)
  Sender: FDA-Public Use
  Company Number: JP-AMGEN-JPNSP2019206135

PATIENT
  Age: 86 Year
  Sex: Female

DRUGS (3)
  1. MOHRUS [Concomitant]
     Active Substance: KETOPROFEN
     Dosage: UNK
  2. EVENITY [Suspect]
     Active Substance: ROMOSOZUMAB-AQQG
     Indication: PRODUCT USED FOR UNKNOWN INDICATION
     Dosage: 210 MILLIGRAM, QMO
     Route: 058
     Dates: start: 20190422, end: 20190819
  3. CALONAL [Concomitant]
     Active Substance: ACETAMINOPHEN
     Dosage: UNK

REACTIONS (4)
  - Aspiration [Unknown]
  - Cardiac failure [Unknown]
  - Tricuspid valve incompetence [Unknown]
  - Death [Fatal]

NARRATIVE: CASE EVENT DATE: 2019
